FAERS Safety Report 16469324 (Version 1)
Quarter: 2019Q3

REPORT INFORMATION
  Report Type: Spontaneous
  Country: US (occurrence: US)
  Receive Date: 20190621
  Receipt Date: 20190621
  Transmission Date: 20191004
  Serious: Yes (Hospitalization, Disabling, Other)
  Sender: FDA-Public Use
  Company Number: None

PATIENT
  Age: 52 Year
  Sex: Female
  Weight: 66.7 kg

DRUGS (7)
  1. AJOVY [Suspect]
     Active Substance: FREMANEZUMAB-VFRM
     Indication: MIGRAINE
     Dosage: ?          OTHER FREQUENCY:MONTHLY;?
     Route: 058
  2. CETIRIZINE 10 MG NIGHTLY [Concomitant]
  3. ESCITALOPRAM 5 NIGHTLY [Concomitant]
  4. CLONAZEPAM 0.5 MG DAILY AS NEEDED [Concomitant]
  5. BUPROPION 150 MG SR DAILY [Concomitant]
  6. TOPIRAMATE ER 50 MG NIGHTLY [Concomitant]
  7. IBUPROFEN 400 MG EVERY 6 HOURS AS NEEDED [Concomitant]

REACTIONS (1)
  - Immune thrombocytopenic purpura [None]

NARRATIVE: CASE EVENT DATE: 20190619
